FAERS Safety Report 8386734-5 (Version None)
Quarter: 2012Q2

REPORT INFORMATION
  Report Type: 
  Country: None (occurrence: None)
  Receive Date: 20120525
  Receipt Date: 20120521
  Transmission Date: 20120825
  Serious: Yes (Life-Threatening, Hospitalization, Other)
  Sender: FDA-Public Use
  Company Number: US-BAYER-200943643NA

PATIENT
  Age: 28 Year
  Sex: Female
  Weight: 79 kg

DRUGS (2)
  1. YAZ [Suspect]
     Indication: PREMENSTRUAL SYNDROME
     Dosage: 1 DF (DAILY DOSE), QD, ORAL
     Route: 048
     Dates: start: 20080326, end: 20091001
  2. PRILOSEC [Concomitant]
     Dosage: UNK
     Route: 048
     Dates: start: 20081208

REACTIONS (3)
  - CHOLECYSTITIS [None]
  - ORGAN FAILURE [None]
  - GALLBLADDER NON-FUNCTIONING [None]
